FAERS Safety Report 4300469-7 (Version None)
Quarter: 2004Q1

REPORT INFORMATION
  Report Type: 
  Country: None (occurrence: None)
  Receive Date: 20040218
  Receipt Date: 20040218
  Transmission Date: 20041129
  Serious: Yes (Other)
  Sender: FDA-Public Use
  Company Number: None

PATIENT
  Sex: Female
  Weight: 59 kg

DRUGS (10)
  1. THALIDOMIDE 100 MG PO  QD [Suspect]
     Indication: MULTIPLE MYELOMA
     Dosage: 100 MG PO QD
     Route: 048
  2. VAD, CYCLE 1, STARTED ON 1/28/04 [Suspect]
     Dosage: CYCLE 1 , STARTED ON 1/28/04
     Dates: start: 20040128
  3. DEXAMETHASONE [Suspect]
     Dosage: 40 MG PO QD
     Route: 048
  4. SYNTHOIR [Concomitant]
  5. M.V.I. [Concomitant]
  6. NEXIUM [Concomitant]
  7. IRON [Concomitant]
  8. COLACE [Concomitant]
  9. SENEKOT S [Concomitant]
  10. COUMADIN [Concomitant]

REACTIONS (3)
  - DYSPNOEA EXERTIONAL [None]
  - PNEUMONIA [None]
  - PYREXIA [None]
